FAERS Safety Report 22332532 (Version 1)
Quarter: 2023Q2

REPORT INFORMATION
  Report Type: Spontaneous
  Country: US (occurrence: None)
  Receive Date: 20230516
  Receipt Date: 20230516
  Transmission Date: 20230722
  Serious: Yes (Disabling)
  Sender: FDA-Public Use
  Company Number: None

PATIENT
  Age: 6 Year
  Sex: Male
  Weight: 38.7 kg

DRUGS (1)
  1. OXCARBAZEPINE [Suspect]
     Active Substance: OXCARBAZEPINE
     Indication: Seizure
     Dates: start: 20211218, end: 20230516

REACTIONS (3)
  - Cough [None]
  - Throat clearing [None]
  - Recalled product administered [None]

NARRATIVE: CASE EVENT DATE: 20211218
